FAERS Safety Report 7036929-8 (Version None)
Quarter: 2010Q4

REPORT INFORMATION
  Report Type: 
  Country: None (occurrence: None)
  Receive Date: 20101011
  Receipt Date: 20101001
  Transmission Date: 20110411
  Serious: Yes (Hospitalization)
  Sender: FDA-Public Use
  Company Number: FR-JNJFOC-20100906110

PATIENT
  Age: 61 Year
  Sex: Female

DRUGS (4)
  1. CAELYX [Suspect]
     Indication: OVARIAN CANCER
     Dosage: COURSE 3
     Route: 042
  2. CAELYX [Suspect]
     Dosage: COURSES 1-2
     Route: 042
  3. PARAPLATIN [Suspect]
     Indication: OVARIAN CANCER
     Dosage: COURSE 3
     Route: 065
  4. PARAPLATIN [Suspect]
     Dosage: COURSES 1-2
     Route: 065

REACTIONS (3)
  - ERYSIPELAS [None]
  - INTERTRIGO [None]
  - SKIN EROSION [None]
